FAERS Safety Report 25629974 (Version 1)
Quarter: 2025Q3

REPORT INFORMATION
  Report Type: Spontaneous
  Country: JP (occurrence: JP)
  Receive Date: 20250731
  Receipt Date: 20250731
  Transmission Date: 20251020
  Serious: Yes (Other)
  Sender: SANDOZ
  Company Number: JP-Sandoz Group AG-00174724

PATIENT

DRUGS (1)
  1. SOMATROPIN [Suspect]
     Active Substance: SOMATROPIN
     Indication: Product used for unknown indication
     Route: 058
     Dates: start: 202504

REACTIONS (5)
  - Angina pectoris [Unknown]
  - Chest pain [Unknown]
  - Headache [Unknown]
  - Diarrhoea [Unknown]
  - Hypersensitivity [Unknown]
